FAERS Safety Report 9255731 (Version 2)
Quarter: 2013Q3

REPORT INFORMATION
  Report Type: Spontaneous
  Country: FR (occurrence: FR)
  Receive Date: 20130425
  Receipt Date: 20130712
  Transmission Date: 20140515
  Serious: Yes (Hospitalization, Other)
  Sender: FDA-Public Use
  Company Number: FR-BRISTOL-MYERS SQUIBB COMPANY-18802454

PATIENT
  Age: 55 Year
  Sex: Female
  Weight: 80 kg

DRUGS (9)
  1. ORENCIA [Suspect]
     Indication: RHEUMATOID ARTHRITIS
     Dosage: REINTRODUCED ON12-JUN-2013
     Route: 042
     Dates: start: 20130306
  2. METHOTREXATE [Suspect]
     Indication: RHEUMATOID ARTHRITIS
     Dosage: 10MG
     Dates: start: 20110707
  3. AMLODIPINE [Concomitant]
  4. CORTANCYL [Concomitant]
  5. LEVOTHYROX [Concomitant]
  6. SEROPLEX [Concomitant]
  7. VENLAFAXINE HCL [Concomitant]
  8. FOLIC ACID [Concomitant]
  9. INSULIN [Concomitant]

REACTIONS (2)
  - Hepatocellular injury [Not Recovered/Not Resolved]
  - Hepatitis E [Recovering/Resolving]
